FAERS Safety Report 5428326-3 (Version None)
Quarter: 2007Q3

REPORT INFORMATION
  Report Type: 
  Country: None (occurrence: None)
  Receive Date: 20070828
  Receipt Date: 20070821
  Transmission Date: 20080115
  Serious: Yes (Other)
  Sender: FDA-Public Use
  Company Number: CH-ROXANE LABORATORIES, INC-2007-BP-19622RO

PATIENT

DRUGS (3)
  1. METHOTREXATE [Suspect]
     Indication: PSORIASIS
  2. INFLIXIMAB [Suspect]
     Indication: PSORIASIS
  3. EFALIZUMAB [Suspect]
     Indication: PSORIASIS

REACTIONS (2)
  - DRUG INEFFECTIVE FOR UNAPPROVED INDICATION [None]
  - REBOUND EFFECT [None]
